FAERS Safety Report 7341438-2 (Version None)
Quarter: 2011Q1

REPORT INFORMATION
  Report Type: 
  Country: None (occurrence: None)
  Receive Date: 20110309
  Receipt Date: 20110303
  Transmission Date: 20110831
  Serious: Yes (Other)
  Sender: FDA-Public Use
  Company Number: US-ROXANE LABORATORIES, INC.-2011-RO-00250RO

PATIENT
  Age: 55 Year
  Sex: Male

DRUGS (2)
  1. MYCOPHENOLATE MOFETIL [Suspect]
     Indication: IMMUNOSUPPRESSANT DRUG THERAPY
     Dates: start: 20020101
  2. TACROLIMUS [Suspect]
     Indication: IMMUNOSUPPRESSANT DRUG THERAPY
     Dates: start: 20020101

REACTIONS (4)
  - PORTAL HYPERTENSIVE GASTROPATHY [None]
  - VARICES OESOPHAGEAL [None]
  - COLITIS [None]
  - LYMPHOPROLIFERATIVE DISORDER [None]
